FAERS Safety Report 17046526 (Version 3)
Quarter: 2021Q2

REPORT INFORMATION
  Report Type: Spontaneous
  Country: FR (occurrence: FR)
  Receive Date: 20191119
  Receipt Date: 20210607
  Transmission Date: 20210716
  Serious: Yes (Hospitalization, Disabling, Other)
  Sender: FDA-Public Use
  Company Number: FR-TEVA-2019-FR-1139316

PATIENT
  Age: 42 Year
  Sex: Female

DRUGS (6)
  1. ANDROCUR [Suspect]
     Active Substance: CYPROTERONE ACETATE
     Dosage: 25 MILLIGRAM DAILY;
     Route: 048
     Dates: start: 2007, end: 2012
  2. ESTREVA [Suspect]
     Active Substance: ESTRADIOL
     Route: 048
     Dates: start: 1999, end: 2005
  3. ANDROCUR [Suspect]
     Active Substance: CYPROTERONE ACETATE
     Indication: CONTRACEPTION
     Dosage: 25 MILLIGRAM DAILY;
     Route: 048
     Dates: start: 1999, end: 2005
  4. ESTREVA [Suspect]
     Active Substance: ESTRADIOL
     Route: 048
     Dates: start: 1994, end: 1998
  5. ANDROCUR [Suspect]
     Active Substance: CYPROTERONE ACETATE
     Indication: ACNE
     Dosage: 25 MILLIGRAM DAILY;
     Route: 048
     Dates: start: 1994, end: 1998
  6. ESTREVA [Suspect]
     Active Substance: ESTRADIOL
     Dates: start: 2007, end: 2012

REACTIONS (27)
  - Epilepsy [Unknown]
  - Agnosia [Unknown]
  - Mood altered [Unknown]
  - Product use in unapproved indication [Unknown]
  - Road traffic accident [Unknown]
  - Meningioma [Unknown]
  - Cognitive disorder [Unknown]
  - Status epilepticus [Unknown]
  - Fatigue [Unknown]
  - Head deformity [Unknown]
  - Migraine [Unknown]
  - Memory impairment [Unknown]
  - Pollakiuria [Unknown]
  - Aggression [Unknown]
  - Procedural pain [Unknown]
  - Ageusia [Unknown]
  - Anosmia [Unknown]
  - Blindness [Unknown]
  - Off label use [Unknown]
  - Clinomania [Unknown]
  - Visual impairment [Unknown]
  - Amnesia [Unknown]
  - Disturbance in attention [Unknown]
  - Balance disorder [Unknown]
  - Anxiety [Unknown]
  - Asthenia [Unknown]
  - Depression [Unknown]

NARRATIVE: CASE EVENT DATE: 2010
